FAERS Safety Report 9702498 (Version 4)
Quarter: 2014Q1

REPORT INFORMATION
  Report Type: Spontaneous
  Country: DE (occurrence: DE)
  Receive Date: 20131121
  Receipt Date: 20140114
  Transmission Date: 20141002
  Serious: Yes (Hospitalization, Other)
  Sender: FDA-Public Use
  Company Number: DE-BMSGILMSD-2013-0088090

PATIENT
  Sex: Female
  Weight: 67 kg

DRUGS (2)
  1. ATRIPLA [Suspect]
     Indication: HIV INFECTION
     Dosage: UNK
     Route: 048
     Dates: start: 200712, end: 201311
  2. VALTREX [Concomitant]
     Dosage: UNK
     Route: 048
     Dates: start: 2006

REACTIONS (5)
  - Hepatitis C [Unknown]
  - Hepatic fibrosis [Unknown]
  - Movement disorder [Unknown]
  - Blood creatine phosphokinase increased [Unknown]
  - Myalgia [Unknown]
